FAERS Safety Report 6123590-X (Version None)
Quarter: 2009Q1

REPORT INFORMATION
  Report Type: 
  Country: None (occurrence: None)
  Receive Date: 20090317
  Receipt Date: 20090317
  Transmission Date: 20090719
  Serious: Yes (Hospitalization)
  Sender: FDA-Public Use
  Company Number: None

PATIENT
  Age: 31 Year
  Sex: Female
  Weight: 47.6277 kg

DRUGS (2)
  1. GEODON [Suspect]
     Indication: PARANOIA
     Dates: start: 20081201
  2. GEODON [Suspect]
     Indication: PSYCHOTIC DISORDER
     Dates: start: 20081201

REACTIONS (1)
  - CHOREA [None]
